FAERS Safety Report 10490332 (Version 1)
Quarter: 2014Q4

REPORT INFORMATION
  Report Type: Spontaneous
  Country: NO (occurrence: NO)
  Receive Date: 20141002
  Receipt Date: 20141002
  Transmission Date: 20150528
  Serious: Yes (Hospitalization, Other)
  Sender: FDA-Public Use
  Company Number: NO-BAYER-2014-143438

PATIENT
  Sex: Female

DRUGS (1)
  1. MIRENA [Suspect]
     Active Substance: LEVONORGESTREL
     Indication: HORMONE REPLACEMENT THERAPY
     Dosage: 20 MCG/24HR, CONT
     Route: 015
     Dates: start: 2002, end: 2014

REACTIONS (4)
  - Device misuse [None]
  - Peritonitis [None]
  - Off label use [None]
  - Fungal test positive [None]
